FAERS Safety Report 18038226 (Version 1)
Quarter: 2020Q3

REPORT INFORMATION
  Report Type: Spontaneous
  Country: US (occurrence: US)
  Receive Date: 20200717
  Receipt Date: 20200717
  Transmission Date: 20201103
  Serious: Yes (Hospitalization, Other)
  Sender: FDA-Public Use
  Company Number: US-APOTEX-2020AP013616

PATIENT
  Age: 16 Year
  Sex: Female

DRUGS (1)
  1. ACETAMINOPHEN. [Suspect]
     Active Substance: ACETAMINOPHEN
     Indication: PRODUCT USED FOR UNKNOWN INDICATION
     Dosage: 51 GRAM (906 MG/KG)
     Route: 048

REACTIONS (10)
  - Analgesic drug level increased [Recovered/Resolved]
  - Vomiting [Recovered/Resolved]
  - Nausea [Recovered/Resolved]
  - Toxicity to various agents [Recovering/Resolving]
  - Intentional overdose [Unknown]
  - Pancreatitis acute [Recovering/Resolving]
  - Transaminases increased [Recovered/Resolved]
  - Prothrombin time ratio increased [Recovered/Resolved]
  - Haematemesis [Recovered/Resolved]
  - Abdominal pain [Recovered/Resolved]
